FAERS Safety Report 14674530 (Version 1)
Quarter: 2018Q1

REPORT INFORMATION
  Report Type: Spontaneous
  Country: US (occurrence: US)
  Receive Date: 20180323
  Receipt Date: 20180323
  Transmission Date: 20180509
  Serious: Yes (Disabling, Other)
  Sender: FDA-Public Use
  Company Number: US-REGENERON PHARMACEUTICALS, INC.-2018-18354

PATIENT

DRUGS (2)
  1. EYLEA [Suspect]
     Active Substance: AFLIBERCEPT
     Dosage: UNK, EVERY 8 WEEKS, LAST DOSE
     Dates: start: 20180118, end: 20180118
  2. EYLEA [Suspect]
     Active Substance: AFLIBERCEPT
     Indication: NEOVASCULAR AGE-RELATED MACULAR DEGENERATION
     Dosage: UNK, EVERY 8 WEEKS
     Dates: start: 201310

REACTIONS (3)
  - Endophthalmitis [Unknown]
  - Intraocular pressure increased [Unknown]
  - Blindness unilateral [Recovering/Resolving]

NARRATIVE: CASE EVENT DATE: 20180118
